FAERS Safety Report 7033196-6 (Version None)
Quarter: 2010Q4

REPORT INFORMATION
  Report Type: 
  Country: None (occurrence: None)
  Receive Date: 20101004
  Receipt Date: 20100923
  Transmission Date: 20110411
  Serious: Yes (Other)
  Sender: FDA-Public Use
  Company Number: 2010US003928

PATIENT
  Age: 38 Year
  Sex: Female
  Weight: 58 kg

DRUGS (9)
  1. PROGRAF [Suspect]
     Indication: LUNG TRANSPLANT
     Dosage: 6 MG, BID, ORAL
     Route: 048
  2. MYCOPHENOLATE MOFETIL [Concomitant]
  3. PREDNISONE TAB [Concomitant]
  4. URSODIOL [Concomitant]
  5. LISINOPRIL [Concomitant]
  6. INSULIN (INSULIN) [Concomitant]
  7. CALCIUM (CALCIUM) [Concomitant]
  8. MAGNESIUM (MAGNESIUM) [Concomitant]
  9. IRON (IRON) [Concomitant]

REACTIONS (3)
  - ABORTION SPONTANEOUS [None]
  - DRUG EXPOSURE DURING PREGNANCY [None]
  - PREGNANCY [None]
